FAERS Safety Report 4608121-5 (Version None)
Quarter: 2005Q2

REPORT INFORMATION
  Report Type: 
  Country: None (occurrence: None)
  Receive Date: 20050302
  Receipt Date: 20041110
  Transmission Date: 20051028
  Serious: No
  Sender: FDA-Public Use
  Company Number: 003513

PATIENT
  Age: 63 Year
  Sex: Female
  Weight: 66.7 kg

DRUGS (3)
  1. TAMOXIFEN CITRATE [Suspect]
     Indication: BREAST CANCER
     Dosage: 1.00 TABLET, QD, ORAL
     Route: 048
     Dates: start: 19990801
  2. MONOPRIL [Concomitant]
  3. TOPRAL (SULTOPRIDE) [Concomitant]

REACTIONS (3)
  - HOT FLUSH [None]
  - MEDICATION ERROR [None]
  - PHARYNGOLARYNGEAL PAIN [None]
